FAERS Safety Report 12597147 (Version 2)
Quarter: 2016Q3

REPORT INFORMATION
  Report Type: Spontaneous
  Country: US (occurrence: US)
  Receive Date: 20160727
  Receipt Date: 20160802
  Transmission Date: 20161109
  Serious: No
  Sender: FDA-Public Use
  Company Number: US-BAYER-2016-138899

PATIENT
  Age: 63 Year
  Sex: Male
  Weight: 117.91 kg

DRUGS (4)
  1. MIRALAX [Suspect]
     Active Substance: POLYETHYLENE GLYCOL 3350
     Indication: UNEVALUABLE EVENT
     Dosage: 1 DF, QD
     Route: 048
     Dates: start: 201607, end: 20160714
  2. MIRALAX [Suspect]
     Active Substance: POLYETHYLENE GLYCOL 3350
     Indication: CONSTIPATION
     Dosage: 1 DF, QD
     Route: 048
  3. MIRAFIBER SUGAR FREE ORANGE POWDER [Suspect]
     Active Substance: METHYLCELLULOSES
  4. MIRALAX [Suspect]
     Active Substance: POLYETHYLENE GLYCOL 3350
     Indication: UNEVALUABLE EVENT
     Dosage: UNK, PRN

REACTIONS (7)
  - Product use issue [None]
  - Arthropathy [None]
  - Product use issue [None]
  - Frequent bowel movements [None]
  - Diarrhoea [None]
  - Flatulence [None]
  - Drug effect incomplete [None]

NARRATIVE: CASE EVENT DATE: 2015
